FAERS Safety Report 18906900 (Version 1)
Quarter: 2021Q1

REPORT INFORMATION
  Report Type: Spontaneous
  Country: IT (occurrence: IT)
  Receive Date: 20210217
  Receipt Date: 20210217
  Transmission Date: 20210420
  Serious: Yes (Hospitalization)
  Sender: FDA-Public Use
  Company Number: IT-PFIZER INC-2021152141

PATIENT
  Age: 16 Year
  Sex: Female

DRUGS (1)
  1. XANAX [Suspect]
     Active Substance: ALPRAZOLAM
     Indication: DRUG ABUSE
     Dosage: 17 ML TOTAL
     Route: 048
     Dates: start: 20200331, end: 20200331

REACTIONS (6)
  - Vertigo [Recovering/Resolving]
  - Sopor [Recovering/Resolving]
  - Balance disorder [Recovering/Resolving]
  - Drug abuse [Recovering/Resolving]
  - Dizziness [Recovering/Resolving]
  - Feeling abnormal [Recovering/Resolving]

NARRATIVE: CASE EVENT DATE: 20200331
